FAERS Safety Report 12311552 (Version 2)
Quarter: 2016Q2

REPORT INFORMATION
  Report Type: Spontaneous
  Country: KR (occurrence: KR)
  Receive Date: 20160427
  Receipt Date: 20160613
  Transmission Date: 20160815
  Serious: Yes (Death)
  Sender: FDA-Public Use
  Company Number: KR-MALLINCKRODT-T201601430

PATIENT
  Age: 2 Day
  Sex: Female
  Weight: 3.5 kg

DRUGS (12)
  1. MIDAZOLAM [Concomitant]
     Active Substance: MIDAZOLAM\MIDAZOLAM HYDROCHLORIDE
     Dosage: 0.075 MG/KG/HR
     Route: 065
     Dates: start: 20160414, end: 20160415
  2. SILDENAFIL. [Concomitant]
     Active Substance: SILDENAFIL
     Indication: PERSISTENT FOETAL CIRCULATION
     Dosage: 2 MG/KG
     Route: 048
     Dates: start: 20160414, end: 20160415
  3. DOPAMINE [Concomitant]
     Active Substance: DOPAMINE\DOPAMINE HYDROCHLORIDE
     Dosage: 10 MCG/KG/MIN
     Route: 042
     Dates: start: 20160413, end: 20160415
  4. AMPICILLIN AND SULBACTAM [Concomitant]
     Active Substance: AMPICILLIN SODIUM\SULBACTAM SODIUM
     Dosage: 100 MG/KG/DAY (DIVIDED OUT Q 8 HRS)
     Route: 065
     Dates: start: 20160413, end: 20160415
  5. FRESH FROZEN PLASMA [Concomitant]
     Active Substance: HUMAN PLASMA
     Indication: DISSEMINATED INTRAVASCULAR COAGULATION
     Dosage: UNK
     Route: 042
     Dates: start: 20160415
  6. CEFOTAXIME [Concomitant]
     Active Substance: CEFOTAXIME SODIUM
     Dosage: 50 MG/KG Q 8 HRS
     Route: 065
     Dates: start: 20160414, end: 20160415
  7. INOMAX [Suspect]
     Active Substance: NITRIC OXIDE
     Indication: PERSISTENT FOETAL CIRCULATION
     Dosage: 20 PPM, CONTINUOUS
     Dates: start: 20160414, end: 201604
  8. SURFACTANT BL [Concomitant]
     Indication: NEONATAL RESPIRATORY DISTRESS SYNDROME
     Dosage: UNK
     Route: 065
     Dates: start: 20160414
  9. INOMAX [Suspect]
     Active Substance: NITRIC OXIDE
     Dosage: 40 PPM, CONTINUOUS
     Dates: start: 201604, end: 20160415
  10. EPINEPHRINE. [Concomitant]
     Active Substance: EPINEPHRINE
     Dosage: 0.1 MCG/KG/MIN
     Route: 042
     Dates: start: 20160414, end: 20160415
  11. AMIKACIN [Concomitant]
     Active Substance: AMIKACIN
     Dosage: 10 MG/KG, Q 8HRS
     Route: 065
     Dates: start: 20160413, end: 20160414
  12. INOMAX [Suspect]
     Active Substance: NITRIC OXIDE
     Dosage: 80 PPM, CONTINUOUS
     Dates: start: 201604, end: 201604

REACTIONS (1)
  - Neonatal respiratory failure [Fatal]

NARRATIVE: CASE EVENT DATE: 20160415
